FAERS Safety Report 13543219 (Version 2)
Quarter: 2018Q2

REPORT INFORMATION
  Report Type: Report from Study
  Country: US (occurrence: US)
  Receive Date: 20170514
  Receipt Date: 20180520
  Transmission Date: 20180711
  Serious: No
  Sender: FDA-Public Use
  Company Number: US-AMGEN-USASL2017069721

PATIENT
  Age: 61 Year
  Sex: Female

DRUGS (1)
  1. ENBREL [Suspect]
     Active Substance: ETANERCEPT
     Indication: PSORIATIC ARTHROPATHY
     Dosage: UNK
     Route: 065
     Dates: start: 2017, end: 201711

REACTIONS (10)
  - Cough [Recovered/Resolved]
  - Psoriasis [Unknown]
  - Weight increased [Recovered/Resolved]
  - Swelling [Recovered/Resolved]
  - Alopecia [Recovered/Resolved]
  - Injection site haemorrhage [Unknown]
  - Urinary tract infection [Unknown]
  - Injection site warmth [Unknown]
  - Fatigue [Unknown]
  - Injection site erythema [Unknown]

NARRATIVE: CASE EVENT DATE: 2017
